FAERS Safety Report 17957101 (Version 2)
Quarter: 2020Q3

REPORT INFORMATION
  Report Type: Spontaneous
  Country: JP (occurrence: JP)
  Receive Date: 20200629
  Receipt Date: 20200713
  Transmission Date: 20201103
  Serious: Yes (Death, Life-Threatening)
  Sender: FDA-Public Use
  Company Number: JP-ASTRAZENECA-2020SE63276

PATIENT
  Age: 27600 Day
  Sex: Female
  Weight: 38 kg

DRUGS (4)
  1. WARFARIN [Suspect]
     Active Substance: WARFARIN
     Indication: THROMBOSIS
     Dosage: 0.5?2.0 MG
     Route: 048
     Dates: start: 20200422, end: 20200504
  2. NEXIUM [Suspect]
     Active Substance: ESOMEPRAZOLE MAGNESIUM
     Indication: DUODENAL ULCER
     Route: 048
     Dates: start: 20200421, end: 20200507
  3. NEXIUM [Suspect]
     Active Substance: ESOMEPRAZOLE MAGNESIUM
     Indication: DUODENAL ULCER
     Dosage: DOSE UNKNOWN
     Route: 048
     Dates: end: 20200421
  4. INTRALIPOS [Concomitant]
     Active Substance: SOYBEAN OIL
     Dosage: DOSE UNKNOWN
     Route: 041
     Dates: start: 20200406, end: 20200507

REACTIONS (3)
  - Toxic epidermal necrolysis [Recovered/Resolved]
  - Duodenal perforation [Fatal]
  - Dysphagia [Unknown]

NARRATIVE: CASE EVENT DATE: 20200429
